FAERS Safety Report 20046008 (Version 1)
Quarter: 2022Q1

REPORT INFORMATION
  Report Type: Spontaneous
  Country: US (occurrence: None)
  Receive Date: 20211108
  Receipt Date: 20211108
  Transmission Date: 20220423
  Serious: Yes (Disabling)
  Sender: FDA-Public Use
  Company Number: None

PATIENT
  Age: 25 Year
  Sex: Female
  Weight: 139.5 kg

DRUGS (4)
  1. HOMEOPATHICS [Suspect]
     Active Substance: HOMEOPATHICS
     Indication: Nasopharyngitis
  2. ATENOLOL [Concomitant]
     Active Substance: ATENOLOL
  3. ZOLOFT [Concomitant]
     Active Substance: SERTRALINE HYDROCHLORIDE
  4. VITAMIN B [Concomitant]
     Active Substance: VITAMIN B

REACTIONS (2)
  - Anosmia [None]
  - Parosmia [None]

NARRATIVE: CASE EVENT DATE: 20211018
